FAERS Safety Report 4363993-7 (Version None)
Quarter: 2004Q2

REPORT INFORMATION
  Report Type: 
  Country: None (occurrence: None)
  Receive Date: 20040520
  Receipt Date: 20040520
  Transmission Date: 20050107
  Serious: Yes (Life-Threatening, Hospitalization)
  Sender: FDA-Public Use
  Company Number: None

PATIENT
  Age: 55 Year
  Sex: Female
  Weight: 56.6996 kg

DRUGS (4)
  1. RIZATRIPTAN BENZOATE 10MG MERCK [Suspect]
     Indication: MIGRAINE
     Dosage: 10MG PRN SUBLINGUAL
     Route: 060
     Dates: start: 19980601, end: 20040424
  2. SERTRALINE HCL [Suspect]
     Indication: MIGRAINE PROPHYLAXIS
     Dosage: 100MG 1X/DAY ORAL
     Route: 048
     Dates: start: 20020601, end: 20040424
  3. INSULIN PUMP [Concomitant]
  4. DIOVAN [Concomitant]

REACTIONS (5)
  - APHASIA [None]
  - BLOOD PRESSURE INCREASED [None]
  - SEROTONIN SYNDROME [None]
  - VENTRICULAR TACHYCARDIA [None]
  - VOMITING [None]
